FAERS Safety Report 7612349-X (Version None)
Quarter: 2011Q3

REPORT INFORMATION
  Report Type: 
  Country: None (occurrence: None)
  Receive Date: 20110715
  Receipt Date: 20110706
  Transmission Date: 20111222
  Serious: Yes (Hospitalization, Other)
  Sender: FDA-Public Use
  Company Number: US-ASTRAZENECA-2011SE40538

PATIENT
  Age: 60 Year
  Sex: Female
  Weight: 77.1 kg

DRUGS (2)
  1. ATENOLOL [Suspect]
     Indication: TACHYCARDIA
     Route: 065
     Dates: end: 20100101
  2. SYNTHROID [Concomitant]
     Indication: HYPOTHYROIDISM

REACTIONS (5)
  - BLOOD POTASSIUM DECREASED [None]
  - BRADYCARDIA [None]
  - DEHYDRATION [None]
  - PALPITATIONS [None]
  - DIZZINESS [None]
